FAERS Safety Report 6919536-4 (Version None)
Quarter: 2010Q3

REPORT INFORMATION
  Report Type: 
  Country: None (occurrence: None)
  Receive Date: 20100729
  Receipt Date: 20100513
  Transmission Date: 20110219
  Serious: Yes (Other)
  Sender: FDA-Public Use
  Company Number: GXBR2010US01012

PATIENT
  Age: 38 Year
  Sex: Female

DRUGS (3)
  1. INFUVITE ADULT [Suspect]
     Indication: MEDICAL DIET
     Dosage: 3 ML, ONCE/SINGLE, INTRAVENOUS
     Route: 042
     Dates: start: 20100512, end: 20100512
  2. INFUVITE ADULT [Suspect]
  3. LACTATED RINGER'S [Suspect]
     Indication: MEDICATION DILUTION
     Dosage: ONCE/SINGLE, INTRAVENOUS
     Route: 042
     Dates: start: 20100512, end: 20100512

REACTIONS (5)
  - ANAPHYLACTIC REACTION [None]
  - BRONCHOSPASM [None]
  - OXYGEN SATURATION DECREASED [None]
  - PHARYNGEAL ERYTHEMA [None]
  - URTICARIA [None]
